FAERS Safety Report 12273373 (Version 1)
Quarter: 2016Q2

REPORT INFORMATION
  Report Type: Spontaneous
  Country: IL (occurrence: IL)
  Receive Date: 20160415
  Receipt Date: 20160415
  Transmission Date: 20160815
  Serious: Yes (Other)
  Sender: FDA-Public Use
  Company Number: IL-MYLANLABS-2016M1015744

PATIENT

DRUGS (3)
  1. ELTROXIN [Suspect]
     Active Substance: LEVOTHYROXINE
     Indication: HORMONE REPLACEMENT THERAPY
     Route: 064
  2. DESMOPRESSIN [Suspect]
     Active Substance: DESMOPRESSIN
     Indication: HORMONE REPLACEMENT THERAPY
     Route: 064
  3. OXYTOCIN. [Suspect]
     Active Substance: OXYTOCIN
     Indication: PRODUCT USED FOR UNKNOWN INDICATION
     Route: 064

REACTIONS (2)
  - Foetal exposure during pregnancy [Recovered/Resolved]
  - Nonreassuring foetal heart rate pattern [Unknown]
